FAERS Safety Report 8069718-6 (Version None)
Quarter: 2012Q1

REPORT INFORMATION
  Report Type: 
  Country: None (occurrence: None)
  Receive Date: 20120125
  Receipt Date: 20101220
  Transmission Date: 20120608
  Serious: No
  Sender: FDA-Public Use
  Company Number: US-PFIZER INC-2010US-40885

PATIENT
  Sex: Female

DRUGS (2)
  1. SYNTHROID [Concomitant]
     Dosage: UNK
     Dates: start: 20010101
  2. CALAN [Suspect]
     Indication: SUPRAVENTRICULAR TACHYCARDIA
     Dosage: 120 MG, QD
     Route: 048

REACTIONS (5)
  - ASPARTATE AMINOTRANSFERASE ABNORMAL [None]
  - IRRITABLE BOWEL SYNDROME [None]
  - BLOOD BILIRUBIN ABNORMAL [None]
  - ALANINE AMINOTRANSFERASE ABNORMAL [None]
  - OFF LABEL USE [None]
